FAERS Safety Report 12124393 (Version 2)
Quarter: 2016Q1

REPORT INFORMATION
  Report Type: Spontaneous
  Country: US (occurrence: US)
  Receive Date: 20160229
  Receipt Date: 20160314
  Transmission Date: 20160526
  Serious: Yes (Hospitalization)
  Sender: FDA-Public Use
  Company Number: US-ALEXION-A201601282

PATIENT
  Age: 25 Year
  Sex: Male
  Weight: 58.97 kg

DRUGS (1)
  1. STRENSIQ [Suspect]
     Active Substance: ASFOTASE ALFA
     Indication: HYPOPHOSPHATASIA
     Dosage: 2 MG/KG, TIW
     Route: 058
     Dates: start: 20160210, end: 20160219

REACTIONS (6)
  - Upper respiratory tract infection [Not Recovered/Not Resolved]
  - Injection site erythema [Recovered/Resolved]
  - Hyponatraemia [Not Recovered/Not Resolved]
  - Injection site pruritus [Recovered/Resolved]
  - Pyrexia [Unknown]
  - Pyrexia [Recovered/Resolved]

NARRATIVE: CASE EVENT DATE: 20160216
